FAERS Safety Report 7421402-5 (Version None)
Quarter: 2011Q2

REPORT INFORMATION
  Report Type: 
  Country: None (occurrence: None)
  Receive Date: 20110418
  Receipt Date: 20110414
  Transmission Date: 20111010
  Serious: Yes (Hospitalization, Other)
  Sender: FDA-Public Use
  Company Number: US-ABBOTT-11P-163-0713963-00

PATIENT
  Sex: Male
  Weight: 93.07 kg

DRUGS (2)
  1. HUMIRA [Suspect]
     Indication: PSORIASIS
  2. HUMIRA [Suspect]
     Indication: PSORIATIC ARTHROPATHY
     Route: 058
     Dates: start: 20090101, end: 20100616

REACTIONS (5)
  - ABDOMINAL PAIN [None]
  - LARGE INTESTINE PERFORATION [None]
  - COLONIC OBSTRUCTION [None]
  - FLATULENCE [None]
  - ABDOMINAL DISTENSION [None]
